FAERS Safety Report 5307709-6 (Version None)
Quarter: 2007Q2

REPORT INFORMATION
  Report Type: 
  Country: None (occurrence: None)
  Receive Date: 20070418
  Receipt Date: 20070405
  Transmission Date: 20071010
  Serious: Yes (Other)
  Sender: FDA-Public Use
  Company Number: 2007RL000155

PATIENT
  Age: 66 Year
  Sex: Female
  Weight: 69.8539 kg

DRUGS (12)
  1. OMACOR [Suspect]
     Indication: BLOOD TRIGLYCERIDES INCREASED
     Dosage: SEE IMAGE
     Dates: start: 20060101, end: 20070201
  2. OMACOR [Suspect]
     Indication: BLOOD TRIGLYCERIDES INCREASED
     Dosage: SEE IMAGE
     Dates: start: 20070201, end: 20070403
  3. ECOTRIN [Concomitant]
  4. DIOVAN HCT [Concomitant]
  5. COREG [Concomitant]
  6. SYNTHROID [Concomitant]
  7. CENTRUM SILVER [Concomitant]
  8. CITRICAL [Concomitant]
  9. VITAMIN B6 [Concomitant]
  10. BALANCE B100 [Concomitant]
  11. LECITHIN [Concomitant]
  12. ZETIA [Concomitant]

REACTIONS (8)
  - BACK PAIN [None]
  - BLOOD CREATINE PHOSPHOKINASE INCREASED [None]
  - CHILLS [None]
  - FATIGUE [None]
  - MYALGIA [None]
  - PAIN IN EXTREMITY [None]
  - ROAD TRAFFIC ACCIDENT [None]
  - WHIPLASH INJURY [None]
